FAERS Safety Report 8336007-1 (Version None)
Quarter: 2012Q2

REPORT INFORMATION
  Report Type: 
  Country: None (occurrence: None)
  Receive Date: 20120501
  Receipt Date: 20120501
  Transmission Date: 20120825
  Serious: Yes (Hospitalization)
  Sender: FDA-Public Use
  Company Number: None

PATIENT
  Sex: Female
  Weight: 86.4 kg

DRUGS (1)
  1. METHYLPREDNISOLONE [Suspect]
     Dosage: 6496 MG

REACTIONS (11)
  - MUSCLE SPASMS [None]
  - MENTAL STATUS CHANGES [None]
  - TREMOR [None]
  - MUSCULAR WEAKNESS [None]
  - JOINT LOCK [None]
  - BLOOD GLUCOSE INCREASED [None]
  - MUSCULOSKELETAL STIFFNESS [None]
  - NEUROLOGICAL SYMPTOM [None]
  - OSTEONECROSIS [None]
  - MUSCLE SPASTICITY [None]
  - SENSORY DISTURBANCE [None]
